FAERS Safety Report 5144691-9 (Version None)
Quarter: 2006Q4

REPORT INFORMATION
  Report Type: 
  Country: None (occurrence: None)
  Receive Date: 20061031
  Receipt Date: 20061006
  Transmission Date: 20070319
  Serious: Yes (Hospitalization)
  Sender: FDA-Public Use
  Company Number: RB-4184-2006

PATIENT
  Age: 15 Month
  Sex: Male
  Weight: 12.7 kg

DRUGS (2)
  1. SUBOXONE [Suspect]
     Indication: ACCIDENTAL EXPOSURE
  2. NALOXONE [Concomitant]

REACTIONS (5)
  - ACCIDENTAL DRUG INTAKE BY CHILD [None]
  - MIOSIS [None]
  - OXYGEN SATURATION DECREASED [None]
  - SOMNOLENCE [None]
  - VOMITING [None]
